FAERS Safety Report 17731704 (Version 1)
Quarter: 2020Q2

REPORT INFORMATION
  Report Type: Spontaneous
  Country: US (occurrence: US)
  Receive Date: 20200501
  Receipt Date: 20200501
  Transmission Date: 20200714
  Serious: Yes (Other)
  Sender: FDA-Public Use
  Company Number: US-SA-2020SA110281

PATIENT
  Age: 55 Year
  Sex: Female
  Weight: 86 kg

DRUGS (17)
  1. NEOSAR [Concomitant]
     Active Substance: CYCLOPHOSPHAMIDE
     Indication: BREAST CANCER FEMALE
  2. TAXOTERE [Suspect]
     Active Substance: DOCETAXEL
     Indication: BREAST CANCER FEMALE
     Dosage: 184 UNK, Q3W
     Route: 042
     Dates: start: 20000525, end: 20000525
  3. TAXOTERE [Suspect]
     Active Substance: DOCETAXEL
     Dosage: 184 UNK, Q3W
     Route: 042
     Dates: start: 20000706, end: 20000706
  4. TAXOL [Concomitant]
     Active Substance: PACLITAXEL
     Indication: BREAST CANCER FEMALE
  5. LORAZEPAM. [Concomitant]
     Active Substance: LORAZEPAM
     Indication: NAUSEA
  6. DICLOXACILLIN [Concomitant]
     Active Substance: DICLOXACILLIN
  7. DEXAMETHASONE. [Concomitant]
     Active Substance: DEXAMETHASONE
  8. ORUDIS [Concomitant]
     Active Substance: KETOPROFEN
  9. ADRIAMYCIN [Concomitant]
     Active Substance: DOXORUBICIN HYDROCHLORIDE
     Indication: BREAST CANCER FEMALE
  10. EFFEXOR [Concomitant]
     Active Substance: VENLAFAXINE HYDROCHLORIDE
  11. FOSAMAX [Concomitant]
     Active Substance: ALENDRONATE SODIUM
  12. PAXIL [Concomitant]
     Active Substance: PAROXETINE HYDROCHLORIDE
  13. PREMPRO [Concomitant]
     Active Substance: ESTROGENS, CONJUGATED\MEDROXYPROGESTERONE ACETATE
  14. TAMOXIFEN [Concomitant]
     Active Substance: TAMOXIFEN
  15. LIVOSTIN [Concomitant]
     Active Substance: LEVOCABASTINE HYDROCHLORIDE
  16. LETROZOLE. [Concomitant]
     Active Substance: LETROZOLE
  17. ALLEGRA [Concomitant]
     Active Substance: FEXOFENADINE HYDROCHLORIDE

REACTIONS (1)
  - Alopecia [Not Recovered/Not Resolved]
